FAERS Safety Report 8403894-8 (Version None)
Quarter: 2012Q2

REPORT INFORMATION
  Report Type: 
  Country: None (occurrence: None)
  Receive Date: 20120601
  Receipt Date: 20110912
  Transmission Date: 20120825
  Serious: No
  Sender: FDA-Public Use
  Company Number: US-NOVEN-11US003180

PATIENT
  Sex: Female
  Weight: 31.746 kg

DRUGS (1)
  1. DAYTRANA [Suspect]
     Indication: ATTENTION DEFICIT/HYPERACTIVITY DISORDER
     Dosage: 10 MG, UNK
     Route: 062
     Dates: start: 20110910

REACTIONS (5)
  - APPLICATION SITE ERYTHEMA [None]
  - FLUSHING [None]
  - ABDOMINAL DISCOMFORT [None]
  - APPLICATION SITE SWELLING [None]
  - HEADACHE [None]
